FAERS Safety Report 25633510 (Version 1)
Quarter: 2025Q3

REPORT INFORMATION
  Report Type: Spontaneous
  Country: US (occurrence: US)
  Receive Date: 20250801
  Receipt Date: 20250801
  Transmission Date: 20251021
  Serious: Yes (Hospitalization, Other)
  Sender: TEVA
  Company Number: US-TEVA-VS-3356791

PATIENT
  Sex: Female

DRUGS (1)
  1. CLONAZEPAM [Suspect]
     Active Substance: CLONAZEPAM
     Indication: Anxiety
     Route: 065
     Dates: start: 2010, end: 20250717

REACTIONS (6)
  - Hospitalisation [Unknown]
  - Drug ineffective [Unknown]
  - Visual impairment [Unknown]
  - Headache [Unknown]
  - Cerebrovascular accident [Unknown]
  - Diarrhoea [Unknown]

NARRATIVE: CASE EVENT DATE: 20250717
